FAERS Safety Report 14113229 (Version 1)
Quarter: 2017Q4

REPORT INFORMATION
  Report Type: Spontaneous
  Country: US (occurrence: None)
  Receive Date: 20171021
  Receipt Date: 20171021
  Transmission Date: 20180321
  Serious: Yes (Hospitalization)
  Sender: FDA-Public Use
  Company Number: None

PATIENT
  Age: 16 Year
  Sex: Male
  Weight: 98.5 kg

DRUGS (7)
  1. DEXAMEMETHASONE [Suspect]
     Active Substance: DEXAMETHASONE
     Dates: end: 20171018
  2. METHOTREXATE. [Suspect]
     Active Substance: METHOTREXATE
     Dates: end: 20171011
  3. MITOXANTRONE HYDROCHLORIDE. [Suspect]
     Active Substance: MITOXANTRONE HYDROCHLORIDE
     Dates: end: 20171005
  4. HYDROCORTISONE. [Suspect]
     Active Substance: HYDROCORTISONE
     Dates: end: 20171011
  5. ONCASPAR [Suspect]
     Active Substance: PEGASPARGASE
     Dates: end: 20171006
  6. VINCRISTINE SULFATE. [Suspect]
     Active Substance: VINCRISTINE SULFATE
     Dates: end: 20171018
  7. CYTARABINE. [Suspect]
     Active Substance: CYTARABINE
     Dates: end: 20171011

REACTIONS (12)
  - Therapy non-responder [None]
  - Pulmonary arterial pressure increased [None]
  - Diarrhoea [None]
  - Hypoxia [None]
  - Procedural complication [None]
  - Sepsis [None]
  - Chest pain [None]
  - Pneumonia [None]
  - Tachycardia [None]
  - Streptococcus test positive [None]
  - Bacteraemia [None]
  - Pancytopenia [None]

NARRATIVE: CASE EVENT DATE: 20171019
